FAERS Safety Report 9048565 (Version 1)
Quarter: 2013Q1

REPORT INFORMATION
  Report Type: Spontaneous
  Country: US (occurrence: None)
  Receive Date: 20130130
  Receipt Date: 20130130
  Transmission Date: 20140127
  Serious: Yes (Hospitalization)
  Sender: FDA-Public Use
  Company Number: None

PATIENT
  Age: 90 Year
  Sex: Female
  Weight: 57.5 kg

DRUGS (6)
  1. ALEVE [Suspect]
     Indication: ARTHRITIS
     Dosage: RECENTLY RESUMED
     Route: 048
  2. ASA [Concomitant]
     Indication: AORTIC STENOSIS
     Dosage: CHRONIC
     Route: 048
  3. LABETOLOL [Concomitant]
  4. MVI [Concomitant]
  5. FISH  OIL [Concomitant]
  6. LOTREL [Concomitant]

REACTIONS (5)
  - Presyncope [None]
  - Anaemia [None]
  - Occult blood positive [None]
  - Upper gastrointestinal haemorrhage [None]
  - Ulcer [None]
